FAERS Safety Report 9472439 (Version 1)
Quarter: 2013Q3

REPORT INFORMATION
  Report Type: Spontaneous
  Country: US (occurrence: US)
  Receive Date: 20130823
  Receipt Date: 20130823
  Transmission Date: 20140515
  Serious: Yes (Other)
  Sender: FDA-Public Use
  Company Number: US-PFIZER INC-2013242843

PATIENT
  Age: 46 Year
  Sex: Female
  Weight: 40.36 kg

DRUGS (3)
  1. LYRICA [Suspect]
     Indication: FIBROMYALGIA
     Dosage: 200 MG, UNK
  2. BUTRANS [Suspect]
     Indication: ANXIETY
     Dosage: UNK
  3. MODAFINIL [Suspect]
     Dosage: UNK

REACTIONS (9)
  - Brain injury [Unknown]
  - Aneurysm [Unknown]
  - Nervous system disorder [Unknown]
  - Drug intolerance [Unknown]
  - Erythema [Recovered/Resolved]
  - Muscle mass [Recovered/Resolved]
  - Burning sensation [Unknown]
  - Muscle spasms [Unknown]
  - Anxiety [Unknown]
